FAERS Safety Report 9260543 (Version 1)
Quarter: 2013Q2

REPORT INFORMATION
  Report Type: Spontaneous
  Country: CN (occurrence: CN)
  Receive Date: 20130429
  Receipt Date: 20130429
  Transmission Date: 20140414
  Serious: Yes (Other)
  Sender: FDA-Public Use
  Company Number: CN-BAYER-2013-049657

PATIENT
  Age: 12 Year
  Sex: Male
  Weight: 90 kg

DRUGS (1)
  1. BETAFERON [Suspect]
     Dosage: UNK

REACTIONS (3)
  - Myasthenia gravis [None]
  - Pyrexia [None]
  - Muscular weakness [None]
